FAERS Safety Report 10457642 (Version 1)
Quarter: 2014Q3

REPORT INFORMATION
  Report Type: Spontaneous
  Country: US (occurrence: US)
  Receive Date: 20140916
  Receipt Date: 20140916
  Transmission Date: 20150326
  Serious: No
  Sender: FDA-Public Use
  Company Number: US-009507513-1409USA006870

PATIENT

DRUGS (1)
  1. KEYTRUDA [Suspect]
     Active Substance: PEMBROLIZUMAB
     Dosage: 2 MG/KG, UNK
     Route: 042
     Dates: start: 20140828

REACTIONS (3)
  - Urticaria [Unknown]
  - Dyspnoea [Unknown]
  - Rash generalised [Unknown]

NARRATIVE: CASE EVENT DATE: 2014
